FAERS Safety Report 11545903 (Version 1)
Quarter: 2015Q3

REPORT INFORMATION
  Report Type: Spontaneous
  Country: US (occurrence: US)
  Receive Date: 20150903
  Receipt Date: 20150903
  Transmission Date: 20151125
  Serious: No
  Sender: FDA-Public Use
  Company Number: US-ELI_LILLY_AND_COMPANY-US201111003302

PATIENT
  Sex: Male

DRUGS (3)
  1. NOVOLOG MIX 70/30 [Concomitant]
     Active Substance: INSULIN ASPART
     Dosage: 140 U, UNK
  2. HUMALOG MIX50/50 [Suspect]
     Active Substance: INSULIN LISPRO
     Dosage: 110 U, EACH EVENING
  3. HUMALOG MIX50/50 [Suspect]
     Active Substance: INSULIN LISPRO
     Indication: TYPE 2 DIABETES MELLITUS
     Dosage: 65 U, OTHER
     Dates: start: 2007

REACTIONS (3)
  - Pain [Not Recovered/Not Resolved]
  - Exostosis [Not Recovered/Not Resolved]
  - Overweight [Unknown]
